FAERS Safety Report 9773223 (Version 1)
Quarter: 2013Q4

REPORT INFORMATION
  Report Type: Spontaneous
  Country: US (occurrence: US)
  Receive Date: 20131219
  Receipt Date: 20131219
  Transmission Date: 20140711
  Serious: No
  Sender: FDA-Public Use
  Company Number: US-TEVA-445271USA

PATIENT
  Sex: Female

DRUGS (1)
  1. PROAIR HFA [Suspect]
     Indication: ASTHMA
     Route: 055

REACTIONS (9)
  - Palpitations [Unknown]
  - Chest pain [Unknown]
  - Nervousness [Unknown]
  - Headache [Unknown]
  - Dizziness [Unknown]
  - Rhinorrhoea [Unknown]
  - Productive cough [Unknown]
  - Asthma [Unknown]
  - Product packaging issue [Unknown]
